FAERS Safety Report 7406284-X (Version None)
Quarter: 2011Q2

REPORT INFORMATION
  Report Type: 
  Country: None (occurrence: None)
  Receive Date: 20110411
  Receipt Date: 20110401
  Transmission Date: 20111010
  Serious: Yes (Hospitalization)
  Sender: FDA-Public Use
  Company Number: US-JNJFOC-20100908886

PATIENT
  Sex: Male
  Weight: 48.99 kg

DRUGS (3)
  1. CHILDREN'S MOTRIN [Suspect]
     Indication: PYREXIA
     Dosage: 15 ML EVERY 7 HOURS
     Route: 048
  2. CHILDREN'S TYLENOL SUSPENSION [Concomitant]
     Indication: PYREXIA
  3. CHILDREN'S MOTRIN [Suspect]
     Indication: OROPHARYNGEAL PAIN
     Dosage: 15 ML EVERY 7 HOURS
     Route: 048

REACTIONS (2)
  - PNEUMONIA [None]
  - STEVENS-JOHNSON SYNDROME [None]
